FAERS Safety Report 4767244-0 (Version None)
Quarter: 2005Q3

REPORT INFORMATION
  Report Type: 
  Country: None (occurrence: None)
  Receive Date: 20050909
  Receipt Date: 20050909
  Transmission Date: 20060218
  Serious: Yes (Death)
  Sender: FDA-Public Use
  Company Number: None

PATIENT
  Sex: Male
  Weight: 84 kg

DRUGS (9)
  1. VELCADE [Suspect]
     Indication: MALIGNANT MELANOMA
     Dosage: VELCADE IV TWICE WKLY
     Route: 042
     Dates: start: 20050808
  2. VELCADE [Suspect]
     Indication: MALIGNANT MELANOMA
     Dosage: VELCADE IV TWICE WKLY
     Route: 042
     Dates: start: 20050811
  3. VELCADE [Suspect]
     Indication: MALIGNANT MELANOMA
     Dosage: VELCADE IV TWICE WKLY
     Route: 042
     Dates: start: 20050816
  4. VELCADE [Suspect]
     Indication: MALIGNANT MELANOMA
     Dosage: VELCADE IV TWICE WKLY
     Route: 042
     Dates: start: 20050830
  5. VELCADE [Suspect]
     Indication: MALIGNANT MELANOMA
     Dosage: VELCADE IV TWICE WKLY
     Route: 042
     Dates: start: 20050902
  6. TEMODAR [Suspect]
     Dosage: TEMODAR DAILY X 6 WEEKS
     Dates: start: 20050823, end: 20050902
  7. DURAGESIC-100 [Concomitant]
  8. ZOFRAN [Concomitant]
  9. DIDANOSINE [Concomitant]

REACTIONS (1)
  - DISEASE PROGRESSION [None]
